FAERS Safety Report 20584646 (Version 1)
Quarter: 2022Q1

REPORT INFORMATION
  Report Type: Report from Study
  Country: CA (occurrence: CA)
  Receive Date: 20220311
  Receipt Date: 20220311
  Transmission Date: 20220423
  Serious: Yes (Other)
  Sender: FDA-Public Use
  Company Number: CA-TEVA-2022-CA-2013830

PATIENT
  Age: 62 Year
  Sex: Female

DRUGS (1)
  1. COPAXONE [Suspect]
     Active Substance: GLATIRAMER ACETATE
     Indication: Relapsing-remitting multiple sclerosis
     Route: 058
     Dates: start: 20160216, end: 20210210

REACTIONS (6)
  - Choking [Recovered/Resolved]
  - Chest pain [Recovered/Resolved]
  - Oesophageal spasm [Recovered/Resolved]
  - Drug hypersensitivity [Unknown]
  - Off label use [Unknown]
  - Throat tightness [Recovered/Resolved]
